FAERS Safety Report 7734122-4 (Version None)
Quarter: 2011Q3

REPORT INFORMATION
  Report Type: 
  Country: None (occurrence: None)
  Receive Date: 20110907
  Receipt Date: 20110831
  Transmission Date: 20111222
  Serious: Yes (Death)
  Sender: FDA-Public Use
  Company Number: US-SANOFI-AVENTIS-2011SA035717

PATIENT
  Sex: Female
  Weight: 63.04 kg

DRUGS (9)
  1. ZOCOR [Concomitant]
  2. ZYRTEC [Concomitant]
  3. SYNTHROID [Concomitant]
  4. LOVENOX [Suspect]
     Route: 058
     Dates: start: 20110524
  5. LOVENOX [Suspect]
     Route: 058
     Dates: start: 20110524
  6. XANAX [Concomitant]
     Indication: ANXIETY
  7. ADVAIR DISKUS 100/50 [Concomitant]
     Dosage: 500/50
  8. DECADRON [Concomitant]
     Dosage: 4 MG EVERY MORNING AND 2 MG EVERY EVENING
  9. OXYCONTIN [Concomitant]
     Indication: PAIN

REACTIONS (8)
  - HYPERKALAEMIA [None]
  - PANCYTOPENIA [None]
  - LUNG NEOPLASM MALIGNANT [None]
  - ASTHENIA [None]
  - PAIN [None]
  - DYSPNOEA [None]
  - RENAL FAILURE ACUTE [None]
  - RESPIRATORY FAILURE [None]
